FAERS Safety Report 23451973 (Version 3)
Quarter: 2024Q2

REPORT INFORMATION
  Report Type: Spontaneous
  Country: US (occurrence: US)
  Receive Date: 20240129
  Receipt Date: 20240424
  Transmission Date: 20240716
  Serious: Yes (Death, Other)
  Sender: FDA-Public Use
  Company Number: US-BRISTOL-MYERS SQUIBB COMPANY-2024-013545

PATIENT
  Age: 74 Year
  Sex: Male

DRUGS (9)
  1. REBLOZYL [Suspect]
     Active Substance: LUSPATERCEPT-AAMT
     Indication: Product used for unknown indication
     Dosage: FIRST TREATMENT WAS ON 24-OCT-2023
     Dates: start: 20231024
  2. REBLOZYL [Suspect]
     Active Substance: LUSPATERCEPT-AAMT
     Dosage: SECOND TREATMENT WAS ON 13-NOV-2023
     Dates: start: 20231113
  3. REBLOZYL [Suspect]
     Active Substance: LUSPATERCEPT-AAMT
     Dosage: THIRD TREATMENT WAS ON 04-DEC-2023
     Dates: start: 20231204
  4. REBLOZYL [Suspect]
     Active Substance: LUSPATERCEPT-AAMT
     Dosage: FOURTH TREATMENT WAS ON 29-DEC-2023
     Dates: start: 20231229
  5. REBLOZYL [Suspect]
     Active Substance: LUSPATERCEPT-AAMT
     Route: 042
     Dates: start: 20240119
  6. MORNIFLUMATE [Concomitant]
     Active Substance: MORNIFLUMATE
     Indication: Product used for unknown indication
     Route: 048
  7. CRESTOR [Concomitant]
     Active Substance: ROSUVASTATIN CALCIUM
     Indication: Product used for unknown indication
     Dosage: DAILY
     Route: 048
  8. K TAB [Concomitant]
     Indication: Product used for unknown indication
     Dosage: DAILY
     Route: 048
  9. LANTUS [Concomitant]
     Active Substance: INSULIN GLARGINE
     Indication: Product used for unknown indication
     Dosage: 18-20 UNITS DAILY

REACTIONS (1)
  - Death [Fatal]
